FAERS Safety Report 15616304 (Version 1)
Quarter: 2018Q4

REPORT INFORMATION
  Report Type: Report from Study
  Country: GB (occurrence: GB)
  Receive Date: 20181114
  Receipt Date: 20181114
  Transmission Date: 20190205
  Serious: Yes (Other)
  Sender: FDA-Public Use
  Company Number: GB-ACCORD-091728

PATIENT
  Age: 42 Year
  Sex: Female

DRUGS (2)
  1. METHOTREXATE. [Suspect]
     Active Substance: METHOTREXATE
     Indication: PRODUCT USED FOR UNKNOWN INDICATION
     Route: 065
  2. SIMPONI [Suspect]
     Active Substance: GOLIMUMAB
     Indication: ARTHRITIS
     Route: 058
     Dates: start: 201711

REACTIONS (7)
  - Arthralgia [Unknown]
  - Pain in extremity [Not Recovered/Not Resolved]
  - Drug effect decreased [Not Recovered/Not Resolved]
  - Blood glucose increased [Unknown]
  - Menstrual disorder [Recovered/Resolved]
  - Subcutaneous abscess [Recovered/Resolved]
  - Groin abscess [Unknown]

NARRATIVE: CASE EVENT DATE: 20171225
